FAERS Safety Report 5234639-0 (Version None)
Quarter: 2007Q1

REPORT INFORMATION
  Report Type: 
  Country: None (occurrence: None)
  Receive Date: 20070209
  Receipt Date: 20070129
  Transmission Date: 20070707
  Serious: Yes (Disabling)
  Sender: FDA-Public Use
  Company Number: JP-PFIZER INC-2003160266JP

PATIENT
  Sex: Female

DRUGS (8)
  1. GENOTROPIN [Suspect]
     Indication: RENAL FAILURE CHRONIC
     Dosage: DAILY DOSE:.4MG-FREQ:DAILY
     Route: 058
     Dates: start: 20030124, end: 20030522
  2. MAXACALCITOL [Concomitant]
     Dosage: FREQ:0.5 UG THREE TIMES PER WEEK.
  3. VITAMIN D [Concomitant]
     Route: 048
  4. VITAMIN D [Concomitant]
     Route: 042
  5. ALFACALCIDOL [Concomitant]
     Indication: BLOOD PARATHYROID HORMONE
     Dosage: FREQ:3.5 MG TWICE WEEKLY
     Route: 050
     Dates: end: 20030415
  6. ALFACALCIDOL [Concomitant]
     Indication: BLOOD ALKALINE PHOSPHATASE INCREASED
  7. SODIUM BICARBONATE [Concomitant]
     Dates: start: 19980801
  8. CALCIUM CARBONATE [Concomitant]
     Dates: start: 19980801

REACTIONS (2)
  - CONDITION AGGRAVATED [None]
  - HYPERPARATHYROIDISM SECONDARY [None]
